FAERS Safety Report 5288375-5 (Version None)
Quarter: 2007Q1

REPORT INFORMATION
  Report Type: 
  Country: None (occurrence: None)
  Receive Date: 20070116
  Receipt Date: 20060411
  Transmission Date: 20070707
  Serious: Yes (Hospitalization)
  Sender: FDA-Public Use
  Company Number: FEI2006-0520

PATIENT

DRUGS (2)
  1. PARAGARD T 380A [Suspect]
  2. PRENATAL VITAMINS (PRENATAL VITAMINS/01549301/) [Concomitant]

REACTIONS (1)
  - PREMATURE BABY [None]
